FAERS Safety Report 6375792-5 (Version None)
Quarter: 2009Q3

REPORT INFORMATION
  Report Type: 
  Country: None (occurrence: None)
  Receive Date: 20090924
  Receipt Date: 20090921
  Transmission Date: 20100115
  Serious: Yes (Death, Hospitalization, Other)
  Sender: FDA-Public Use
  Company Number: US-WYE-H11104609

PATIENT
  Sex: Female
  Weight: 55.8 kg

DRUGS (10)
  1. TEMSIROLIMUS [Suspect]
     Indication: MULTIPLE MYELOMA
     Dosage: 15 MG DAYS 1,8,15,22,19 EVERY 35 DAYS
     Dates: start: 20090706, end: 20090916
  2. AMBIEN [Concomitant]
  3. NEUPOGEN [Concomitant]
  4. TYLENOL (CAPLET) [Concomitant]
  5. OXYCODONE [Concomitant]
  6. VALACYCLOVIR HCL [Concomitant]
  7. LIPITOR [Concomitant]
  8. VALTREX [Concomitant]
  9. BORTEZOMIB [Suspect]
     Indication: MULTIPLE MYELOMA
     Dosage: 1.3 MG/M^2 DAYS 1,8,15,22 EVERY 35 DAYS
     Dates: start: 20090706, end: 20090916
  10. LEVOFLOXACIN [Concomitant]

REACTIONS (4)
  - DISEASE PROGRESSION [None]
  - LEUKOPENIA [None]
  - NEUTROPENIA [None]
  - SEPSIS [None]
